FAERS Safety Report 14656355 (Version 1)
Quarter: 2018Q1

REPORT INFORMATION
  Report Type: Spontaneous
  Country: US (occurrence: US)
  Receive Date: 20180319
  Receipt Date: 20180319
  Transmission Date: 20180509
  Serious: No
  Sender: FDA-Public Use
  Company Number: None

PATIENT
  Age: 79 Year
  Sex: Female
  Weight: 68.04 kg

DRUGS (18)
  1. ZOFRAN [Suspect]
     Active Substance: ONDANSETRON HYDROCHLORIDE
  2. BACLOFEN. [Concomitant]
     Active Substance: BACLOFEN
  3. NORVASC [Concomitant]
     Active Substance: AMLODIPINE BESYLATE
  4. MAG-OX [Concomitant]
     Active Substance: MAGNESIUM OXIDE
  5. LISINOPRIL. [Concomitant]
     Active Substance: LISINOPRIL
  6. ROPINIROLE. [Concomitant]
     Active Substance: ROPINIROLE
  7. ALLEGRA [Concomitant]
     Active Substance: FEXOFENADINE HYDROCHLORIDE
  8. ZINC. [Concomitant]
     Active Substance: ZINC
  9. NEXIUM [Concomitant]
     Active Substance: ESOMEPRAZOLE MAGNESIUM
  10. METFORMIN [Concomitant]
     Active Substance: METFORMIN HYDROCHLORIDE
  11. PROBIOTIC [Concomitant]
     Active Substance: PROBIOTICS NOS
  12. LYRICA [Suspect]
     Active Substance: PREGABALIN
  13. MOBIC [Concomitant]
     Active Substance: MELOXICAM
  14. CLONAZEPAM. [Concomitant]
     Active Substance: CLONAZEPAM
  15. CALCIUM PLUS VITAMIN D [Concomitant]
     Active Substance: CALCIUM\VITAMIN D
  16. COENZYME Q10 [Concomitant]
     Active Substance: UBIDECARENONE
  17. DENOSUMAB SOLUTION FOR INJECTION-PROLIA- XGEVA [Suspect]
     Active Substance: DENOSUMAB
     Indication: BONE DISORDER
     Dosage: INJECTION ONE SUPOSE TO LAST 6 MONTHS
     Dates: start: 20171114, end: 20171114
  18. LIPITOR [Suspect]
     Active Substance: ATORVASTATIN CALCIUM

REACTIONS (5)
  - Decreased appetite [None]
  - Weight decreased [None]
  - Erythema [None]
  - Nausea [None]
  - Diarrhoea [None]

NARRATIVE: CASE EVENT DATE: 20171114
